FAERS Safety Report 25191526 (Version 2)
Quarter: 2025Q2

REPORT INFORMATION
  Report Type: Report from Study
  Country: US (occurrence: US)
  Receive Date: 20250414
  Receipt Date: 20250522
  Transmission Date: 20250717
  Serious: No
  Sender: SANDOZ
  Company Number: US-SANDOZ-SDZ2025US020782

PATIENT
  Age: 12 Year
  Sex: Male

DRUGS (6)
  1. OMNITROPE [Suspect]
     Active Substance: SOMATROPIN
     Dosage: 1.05 MG, STRENGTH (5 MG/1.5 ML SOLUTION FOR INJECTION IN CARTRIDGE)
     Route: 058
  2. OMNITROPE [Suspect]
     Active Substance: SOMATROPIN
     Dosage: 1.05 MG, STRENGTH (5 MG/1.5 ML SOLUTION FOR INJECTION IN CARTRIDGE)
     Route: 058
  3. OMNITROPE [Suspect]
     Active Substance: SOMATROPIN
     Indication: Hypopituitarism
     Dosage: 1.05 MG, QD,
     Route: 058
     Dates: start: 202502
  4. OMNITROPE [Suspect]
     Active Substance: SOMATROPIN
     Indication: Hypopituitarism
     Dosage: 1.05 MG, QD,
     Route: 058
     Dates: start: 202502
  5. OMNITROPE [Suspect]
     Active Substance: SOMATROPIN
     Dosage: 1.05 MG, QD
     Route: 058
     Dates: start: 20250329
  6. OMNITROPE [Suspect]
     Active Substance: SOMATROPIN
     Dosage: 1.05 MG, QD
     Route: 058
     Dates: start: 20250329

REACTIONS (11)
  - Mood altered [Unknown]
  - Injection site discharge [Unknown]
  - Abdominal pain upper [Unknown]
  - Injection site pain [Unknown]
  - Headache [Recovered/Resolved]
  - Accidental exposure to product [Unknown]
  - Wrong technique in product usage process [Unknown]
  - Incorrect dose administered by device [Unknown]
  - Device leakage [Unknown]
  - Device malfunction [Unknown]
  - Device issue [Unknown]

NARRATIVE: CASE EVENT DATE: 20250330
